FAERS Safety Report 20330216 (Version 4)
Quarter: 2022Q3

REPORT INFORMATION
  Report Type: Spontaneous
  Country: US (occurrence: US)
  Receive Date: 20220113
  Receipt Date: 20220805
  Transmission Date: 20221027
  Serious: Yes (Other)
  Sender: FDA-Public Use
  Company Number: US-NOVARTISTESTPH-NVSC2022US006106

PATIENT
  Sex: Female

DRUGS (2)
  1. DOCETAXEL [Suspect]
     Active Substance: DOCETAXEL
     Indication: Breast cancer
     Dosage: UNK
     Route: 065
     Dates: start: 20191008, end: 20191112
  2. TAXOTERE [Suspect]
     Active Substance: DOCETAXEL
     Indication: Breast cancer
     Dosage: UNK
     Route: 065
     Dates: start: 20191008, end: 20191112

REACTIONS (11)
  - Dacryostenosis acquired [Not Recovered/Not Resolved]
  - Lacrimation increased [Unknown]
  - Discomfort [Unknown]
  - Emotional distress [Unknown]
  - Anxiety [Unknown]
  - Anhedonia [Unknown]
  - Deformity [Unknown]
  - Injury [Unknown]
  - Eye irritation [Unknown]
  - Eye swelling [Unknown]
  - Pain [Unknown]
